FAERS Safety Report 9727141 (Version 2)
Quarter: 2013Q4

REPORT INFORMATION
  Report Type: Report from Study
  Country: VE (occurrence: VE)
  Receive Date: 20131203
  Receipt Date: 20131209
  Transmission Date: 20140711
  Serious: Yes (Other)
  Sender: FDA-Public Use
  Company Number: PHHY2013VE140050

PATIENT
  Age: 39 Year
  Sex: Female

DRUGS (2)
  1. LEPONEX [Suspect]
     Indication: SCHIZOPHRENIA
     Dosage: 300 MG, DAILY
     Route: 048
  2. FLURALEMA [Concomitant]
     Indication: SCHIZOPHRENIA
     Dosage: 30 MG, DAILY
     Route: 048

REACTIONS (3)
  - Breast mass [Recovered/Resolved]
  - Feeling abnormal [Unknown]
  - Constipation [Recovered/Resolved]
